FAERS Safety Report 17426699 (Version 2)
Quarter: 2020Q1

REPORT INFORMATION
  Report Type: Spontaneous
  Country: US (occurrence: US)
  Receive Date: 20200217
  Receipt Date: 20200317
  Transmission Date: 20200409
  Serious: Yes (Death)
  Sender: FDA-Public Use
  Company Number: US-TASMAN PHARMA, INC.-2020TSM00026

PATIENT
  Sex: Female
  Weight: 45.53 kg

DRUGS (19)
  1. METFORMIN [Concomitant]
     Active Substance: METFORMIN HYDROCHLORIDE
     Dosage: 500 MG, 1X/DAY IN THE MORNING
  2. MARINOL [Concomitant]
     Active Substance: DRONABINOL
     Dosage: 5 MG, 2X/DAY
     Route: 048
  3. DSS / SENNA [Concomitant]
     Dosage: 2 TABLETS, 1X/DAY IN THE MORNING
     Route: 048
  4. LITHIUM. [Concomitant]
     Active Substance: LITHIUM
     Dosage: 150 MG, 1X/DAY IN THE MORNING
  5. MELATONIN [Concomitant]
     Active Substance: MELATONIN
     Dosage: 6 MG, 1X/DAY AT BEDTIME
     Route: 048
  6. PULMICORT TURBUHALER [Concomitant]
     Active Substance: BUDESONIDE
     Dosage: 1 DOSAGE UNITS, 2X/DAY
  7. ABILIFY [Concomitant]
     Active Substance: ARIPIPRAZOLE
     Dosage: 5 MG, 1X/DAY AT BEDTIME
  8. LEVAQUIN [Concomitant]
     Active Substance: LEVOFLOXACIN
     Dosage: 750 MG, EVERY 48 HOURS
     Route: 048
  9. PERFOROMIST [Concomitant]
     Active Substance: FORMOTEROL FUMARATE DIHYDRATE
  10. LITHIUM. [Concomitant]
     Active Substance: LITHIUM
     Dosage: 300 MG, 1X/DAY AT BEDTIME
  11. PREDNISONE. [Concomitant]
     Active Substance: PREDNISONE
     Dosage: 15 MG, 1X/DAY
     Route: 048
  12. METOPROLOL TARTRATE. [Concomitant]
     Active Substance: METOPROLOL TARTRATE
     Dosage: 25 MG, 2X/DAY
     Route: 048
  13. APAP [Concomitant]
     Active Substance: ACETAMINOPHEN
     Dosage: UNK, AS NEEDED
  14. SPIRIVA [Concomitant]
     Active Substance: TIOTROPIUM BROMIDE MONOHYDRATE
     Dosage: 2 DOSAGE UNITS, 1X/DAY IN THE MORNING
  15. CLOZAPINE. [Suspect]
     Active Substance: CLOZAPINE
     Indication: SCHIZOAFFECTIVE DISORDER BIPOLAR TYPE
     Dosage: 100 MG, 1X/DAY IN THE MORNING
     Dates: start: 201102
  16. DUONEB [Concomitant]
     Active Substance: ALBUTEROL SULFATE\IPRATROPIUM BROMIDE
     Dosage: UNK, 4X/DAY
  17. CLOZAPINE. [Suspect]
     Active Substance: CLOZAPINE
     Dosage: 125 MG, 1X/DAY AT BEDTIME
     Dates: start: 201102
  18. BISACODYL. [Concomitant]
     Active Substance: BISACODYL
     Dosage: UNK, AS NEEDED
  19. ABILIFY [Concomitant]
     Active Substance: ARIPIPRAZOLE
     Dosage: 2 MG, 1X/DAY IN THE MORNING

REACTIONS (6)
  - Chronic obstructive pulmonary disease [Fatal]
  - Pneumonia [Fatal]
  - Type 2 diabetes mellitus [Fatal]
  - Hypertension [Fatal]
  - Cardiac failure [Fatal]
  - Schizoaffective disorder bipolar type [Fatal]
